FAERS Safety Report 13859952 (Version 3)
Quarter: 2019Q1

REPORT INFORMATION
  Report Type: Report from Study
  Country: KR (occurrence: KR)
  Receive Date: 20170811
  Receipt Date: 20190207
  Transmission Date: 20190417
  Serious: Yes (Hospitalization, Other)
  Sender: FDA-Public Use
  Company Number: KR-GLAXOSMITHKLINE-KR2017108293

PATIENT
  Age: 33 Year
  Sex: Female

DRUGS (7)
  1. SOLONDO [Concomitant]
     Active Substance: PREDNISOLONE
     Indication: SYSTEMIC LUPUS ERYTHEMATOSUS
     Dosage: 12.5 MG, 1D
     Route: 048
     Dates: start: 20160603, end: 20170630
  2. OXIKLORIN [Concomitant]
     Active Substance: HYDROXYCHLOROQUINE SULFATE
     Indication: SYSTEMIC LUPUS ERYTHEMATOSUS
     Dosage: 200 MG, 1D
     Route: 048
     Dates: start: 20170602
  3. OXIKLORIN [Concomitant]
     Active Substance: HYDROXYCHLOROQUINE SULFATE
     Dosage: 200 MG, UNK
     Route: 048
     Dates: start: 20100624, end: 20170601
  4. IMURAN [Concomitant]
     Active Substance: AZATHIOPRINE
     Indication: SYSTEMIC LUPUS ERYTHEMATOSUS
     Dosage: 100 MG, 1D
     Route: 048
     Dates: start: 20100826, end: 20170602
  5. ASPIRIN HANMI [Concomitant]
     Dosage: 50 MG, 1D
     Route: 048
     Dates: start: 20170810
  6. BELIMUMAB [Suspect]
     Active Substance: BELIMUMAB
     Indication: SYSTEMIC LUPUS ERYTHEMATOSUS
     Dosage: 10 MG/KG, CYC
     Route: 042
     Dates: start: 20160907, end: 20170515
  7. ASPIRIN HANMI [Concomitant]
     Indication: SYSTEMIC LUPUS ERYTHEMATOSUS
     Dosage: 50 MG, 1D
     Route: 048
     Dates: start: 20160601, end: 20170717

REACTIONS (1)
  - Lupus nephritis [Recovered/Resolved]

NARRATIVE: CASE EVENT DATE: 20170525
